APPROVED DRUG PRODUCT: TRIENTINE HYDROCHLORIDE
Active Ingredient: TRIENTINE HYDROCHLORIDE
Strength: 250MG
Dosage Form/Route: CAPSULE;ORAL
Application: A211134 | Product #001 | TE Code: AB
Applicant: MSN LABORATORIES PRIVATE LTD
Approved: May 22, 2019 | RLD: No | RS: No | Type: RX